FAERS Safety Report 6507750-1 (Version None)
Quarter: 2009Q4

REPORT INFORMATION
  Report Type: 
  Country: None (occurrence: None)
  Receive Date: 20091221
  Receipt Date: 20091211
  Transmission Date: 20100525
  Serious: Yes (Other)
  Sender: FDA-Public Use
  Company Number: FR-TEVA-217813ISR

PATIENT
  Sex: Female
  Weight: 50 kg

DRUGS (4)
  1. COPAXONE [Suspect]
     Indication: MULTIPLE SCLEROSIS
     Route: 058
     Dates: start: 20080101, end: 20080101
  2. COPAXONE [Suspect]
     Route: 058
     Dates: start: 20091208
  3. LEVOTHYROXINE SODIUM [Concomitant]
     Indication: HYPOTHYROIDISM
  4. PROPRANOLOL [Concomitant]
     Indication: ATRIAL FIBRILLATION
     Route: 048

REACTIONS (9)
  - CHILLS [None]
  - CYTOLYTIC HEPATITIS [None]
  - FATIGUE [None]
  - FEELING COLD [None]
  - HEADACHE [None]
  - HYPERTONIA [None]
  - JAUNDICE [None]
  - MUSCLE SPASMS [None]
  - TREMOR [None]
